FAERS Safety Report 6383617-7 (Version None)
Quarter: 2009Q4

REPORT INFORMATION
  Report Type: 
  Country: None (occurrence: None)
  Receive Date: 20091001
  Receipt Date: 20090923
  Transmission Date: 20100525
  Serious: Yes (Hospitalization)
  Sender: FDA-Public Use
  Company Number: IT-ASTRAZENECA-2009SE14880

PATIENT
  Sex: Female

DRUGS (1)
  1. ATENOLOL [Suspect]

REACTIONS (1)
  - ATRIOVENTRICULAR BLOCK COMPLETE [None]
